FAERS Safety Report 8623547-0 (Version None)
Quarter: 2012Q3

REPORT INFORMATION
  Report Type: 
  Country: None (occurrence: None)
  Receive Date: 20120827
  Receipt Date: 20120814
  Transmission Date: 20120928
  Serious: Yes (Other)
  Sender: FDA-Public Use
  Company Number: US-VERTEX PHARMACEUTICAL INC.-2012-019725

PATIENT
  Sex: Male

DRUGS (2)
  1. RIBAVIRIN [Concomitant]
     Indication: HEPATITIS C
     Dosage: 600 MG, BID
     Route: 048
     Dates: start: 20120424, end: 20120530
  2. INCIVEK [Suspect]
     Indication: HEPATITIS C
     Dosage: 750 MG, TID
     Dates: start: 20120324, end: 20120529

REACTIONS (4)
  - CHEST PAIN [None]
  - ANORECTAL DISCOMFORT [None]
  - PRURITUS [None]
  - HAEMATOCHEZIA [None]
